FAERS Safety Report 9069883 (Version 1)
Quarter: 2013Q1

REPORT INFORMATION
  Report Type: Report from Study
  Country: US (occurrence: US)
  Receive Date: 20130129
  Receipt Date: 20130129
  Transmission Date: 20140127
  Serious: No
  Sender: FDA-Public Use
  Company Number: US-ABBOTT-12P-163-0942108-00

PATIENT
  Age: 47 Year
  Sex: Female

DRUGS (4)
  1. HUMIRA 40 MG/0.8 ML PEN [Suspect]
     Indication: PSORIASIS
     Dates: start: 201112
  2. SORIATANE [Concomitant]
     Indication: PRODUCT USED FOR UNKNOWN INDICATION
     Dosage: ROTATES FROM 1 EVERY 2 + 2 EVERY 2 DAYS
  3. SORIATANE [Concomitant]
     Dosage: ROTATES FROM 1 EVERY 2 + 2 EVERY 2 DAYS
  4. TRIAMCINOLONE [Concomitant]
     Dosage: TWICE A DAY AS NEEDED

REACTIONS (2)
  - Injection site haemorrhage [Recovered/Resolved]
  - Injection site pain [Unknown]
